FAERS Safety Report 26071526 (Version 1)
Quarter: 2025Q4

REPORT INFORMATION
  Report Type: Spontaneous
  Country: US (occurrence: US)
  Receive Date: 20251120
  Receipt Date: 20251120
  Transmission Date: 20260118
  Serious: Yes (Other)
  Sender: NOVO NORDISK
  Company Number: US-NOVOPROD-1568551

PATIENT
  Age: 52 Year
  Sex: Female
  Weight: 81.633 kg

DRUGS (3)
  1. NOVOLIN N [Suspect]
     Active Substance: INSULIN HUMAN
     Indication: Type 2 diabetes mellitus
     Dosage: 20 IU QD (BEDTIME)
     Route: 058
     Dates: start: 2000
  2. NOVOLIN R [Suspect]
     Active Substance: INSULIN HUMAN
     Indication: Type 2 diabetes mellitus
     Dosage: SLIDING SCALE
     Route: 058
     Dates: start: 2010
  3. NPH INSULIN [Suspect]
     Active Substance: INSULIN BEEF
     Indication: Type 2 diabetes mellitus
     Dosage: UNK

REACTIONS (2)
  - Ischaemic stroke [Not Recovered/Not Resolved]
  - Back injury [Unknown]

NARRATIVE: CASE EVENT DATE: 20130101
